FAERS Safety Report 11940337 (Version 4)
Quarter: 2016Q1

REPORT INFORMATION
  Report Type: Spontaneous
  Country: US (occurrence: US)
  Receive Date: 20160122
  Receipt Date: 20160316
  Transmission Date: 20160526
  Serious: Yes (Hospitalization, Other)
  Sender: FDA-Public Use
  Company Number: CHPA2016US000992

PATIENT
  Age: 60 Year
  Sex: Female

DRUGS (1)
  1. VOLTAREN [Suspect]
     Active Substance: DICLOFENAC SODIUM
     Indication: ARTHRITIS
     Dosage: 0.5 INCH, BID, PRN IN AM AND PM
     Route: 061
     Dates: start: 2013, end: 2015

REACTIONS (10)
  - Arthritis [Not Recovered/Not Resolved]
  - Chest pain [Recovered/Resolved]
  - Inappropriate schedule of drug administration [Unknown]
  - Drug administered at inappropriate site [Unknown]
  - Incorrect dose administered [Unknown]
  - Joint swelling [Not Recovered/Not Resolved]
  - Furuncle [Recovered/Resolved]
  - Rebound effect [Not Recovered/Not Resolved]
  - Drug ineffective [Unknown]
  - Myocardial infarction [Recovered/Resolved]

NARRATIVE: CASE EVENT DATE: 2013
